FAERS Safety Report 7254793-9 (Version None)
Quarter: 2011Q1

REPORT INFORMATION
  Report Type: 
  Country: None (occurrence: None)
  Receive Date: 20110129
  Receipt Date: 20100316
  Transmission Date: 20110831
  Serious: No
  Sender: FDA-Public Use
  Company Number: US-ABBOTT-10P-163-0634147-00

PATIENT
  Weight: 50.848 kg

DRUGS (6)
  1. HUMIRA [Suspect]
     Indication: CROHN'S DISEASE
  2. OXYCODONE [Concomitant]
     Indication: PAIN MANAGEMENT
  3. SOMA [Concomitant]
     Indication: PRODUCT USED FOR UNKNOWN INDICATION
  4. HUMIRA [Suspect]
     Indication: RHEUMATOID ARTHRITIS
     Dosage: 160MG LOADING DOSE
     Dates: start: 20100311
  5. ROXYCONTIN [Concomitant]
     Indication: PAIN MANAGEMENT
  6. XANAX [Concomitant]
     Indication: INSOMNIA

REACTIONS (4)
  - VOMITING [None]
  - DIZZINESS [None]
  - NAUSEA [None]
  - VIRAL INFECTION [None]
